FAERS Safety Report 14505075 (Version 2)
Quarter: 2018Q1

REPORT INFORMATION
  Report Type: Spontaneous
  Country: AT (occurrence: AT)
  Receive Date: 20180208
  Receipt Date: 20180208
  Transmission Date: 20180509
  Serious: Yes (Other)
  Sender: FDA-Public Use
  Company Number: AT-ABBVIE-18P-009-2249976-00

PATIENT
  Age: 29 Year
  Sex: Female

DRUGS (2)
  1. MAVIRET [Suspect]
     Active Substance: GLECAPREVIR\PIBRENTASVIR
     Indication: HEPATITIS C
     Dosage: DAILY DOSE: 300/120MG ?FREQUENCY: 3-0-0
     Route: 048
     Dates: start: 20171205, end: 20180130
  2. GENVOYA [Concomitant]
     Active Substance: COBICISTAT\ELVITEGRAVIR\EMTRICITABINE\TENOFOVIR ALAFENAMIDE FUMARATE
     Indication: HIV INFECTION
     Dosage: DAILY DOSE: 150/150/200/10?FREQUENCY TEXT: 1-0-0
     Route: 048
     Dates: start: 20170210

REACTIONS (3)
  - Abdominal pain lower [Unknown]
  - Exposure during pregnancy [Unknown]
  - Ectopic pregnancy [Unknown]

NARRATIVE: CASE EVENT DATE: 201801
